FAERS Safety Report 5264534-2 (Version None)
Quarter: 2007Q1

REPORT INFORMATION
  Report Type: 
  Country: None (occurrence: None)
  Receive Date: 20061213
  Receipt Date: 20050414
  Transmission Date: 20070707
  Serious: Yes (Other)
  Sender: FDA-Public Use
  Company Number: 2005UW05828

PATIENT
  Sex: Male

DRUGS (1)
  1. IRESSA [Suspect]
     Indication: SMALL CELL LUNG CANCER STAGE UNSPECIFIED

REACTIONS (3)
  - ACNE [None]
  - AORTIC ARTERIOSCLEROSIS [None]
  - DISEASE PROGRESSION [None]
